FAERS Safety Report 8465132-X (Version None)
Quarter: 2012Q2

REPORT INFORMATION
  Report Type: 
  Country: None (occurrence: None)
  Receive Date: 20120619
  Receipt Date: 20120604
  Transmission Date: 20120825
  Serious: Yes (Other)
  Sender: FDA-Public Use
  Company Number: 2012MA007054

PATIENT
  Age: 62 Year
  Sex: Female

DRUGS (7)
  1. CISPLATIN [Concomitant]
  2. CYTARABINE [Concomitant]
  3. PACLITAXEL [Suspect]
     Indication: METASTATIC MALIGNANT MELANOMA
     Dosage: 200 MG/M**2;Q3W; IV
     Route: 042
     Dates: start: 20080101
  4. SORAFENIB [Concomitant]
  5. PEPTIDE  VACCINATION [Concomitant]
  6. TREOSULFAN [Concomitant]
  7. DACARBAZINE [Concomitant]

REACTIONS (2)
  - VISUAL ACUITY REDUCED [None]
  - CYSTOID MACULAR OEDEMA [None]
